FAERS Safety Report 19399125 (Version 1)
Quarter: 2021Q2

REPORT INFORMATION
  Report Type: Spontaneous
  Country: TN (occurrence: TN)
  Receive Date: 20210610
  Receipt Date: 20210610
  Transmission Date: 20210717
  Serious: Yes (Other)
  Sender: FDA-Public Use
  Company Number: TN-STRIDES ARCOLAB LIMITED-2021SP006276

PATIENT
  Age: 33 Year
  Sex: Female

DRUGS (7)
  1. AZATHIOPRINE. [Suspect]
     Active Substance: AZATHIOPRINE
     Indication: VOGT-KOYANAGI-HARADA DISEASE
     Dosage: 2.5 MILLIGRAM/KILOGRAM PER DAY
     Route: 065
  2. PREDNISOLONE. [Suspect]
     Active Substance: PREDNISOLONE
     Dosage: 5 MILLIGRAM PER DAY
     Route: 065
  3. PREDNISOLONE. [Suspect]
     Active Substance: PREDNISOLONE
     Dosage: 1 MICROGRAM/KILOGRAM PER DAY
     Route: 048
  4. PREDNISOLONE. [Suspect]
     Active Substance: PREDNISOLONE
     Indication: VOGT-KOYANAGI-HARADA DISEASE
     Dosage: UNK, THE ERRONEOUS DOSE OF CORTICOSTEROIDS WAS PROGRESSIVELY CORRECTED WITH THE HELP OF ENDOCRINOLOG
     Route: 048
  5. PREDNISOLONE. [Suspect]
     Active Substance: PREDNISOLONE
     Dosage: 4 MILLIGRAM/KILOGRAM PER DAY
     Route: 048
  6. PREDNISOLONE. [Suspect]
     Active Substance: PREDNISOLONE
     Dosage: 0.5 MILLIGRAM/KILOGRAM PER DAY
     Route: 048
  7. DEXAMETHASONE. [Concomitant]
     Active Substance: DEXAMETHASONE
     Indication: VOGT-KOYANAGI-HARADA DISEASE
     Dosage: UNK, BID

REACTIONS (6)
  - Retinal haemorrhage [Unknown]
  - Cytomegalovirus chorioretinitis [Recovered/Resolved]
  - Retinal artery occlusion [Not Recovered/Not Resolved]
  - Accidental overdose [Recovered/Resolved]
  - Off label use [Unknown]
  - Blindness [Not Recovered/Not Resolved]
